FAERS Safety Report 11590116 (Version 2)
Quarter: 2015Q4

REPORT INFORMATION
  Report Type: Spontaneous
  Country: JP (occurrence: JP)
  Receive Date: 20151002
  Receipt Date: 20151020
  Transmission Date: 20160304
  Serious: Yes (Death)
  Sender: FDA-Public Use
  Company Number: JP-TEVA-598234ISR

PATIENT
  Age: 4 Decade
  Sex: Female
  Weight: 57.5 kg

DRUGS (6)
  1. PAROXETINE [Interacting]
     Active Substance: PAROXETINE\PAROXETINE HYDROCHLORIDE
     Indication: PANIC DISORDER
     Route: 048
  2. DIAZEPAM. [Suspect]
     Active Substance: DIAZEPAM
     Indication: PANIC DISORDER
     Route: 048
  3. NORDIAZEPAM [Suspect]
     Active Substance: NORDAZEPAM
     Indication: PANIC DISORDER
     Route: 065
  4. TEMAZEPAM. [Suspect]
     Active Substance: TEMAZEPAM
     Indication: PANIC DISORDER
     Route: 065
  5. DIPHENHYDRAMINE. [Interacting]
     Active Substance: DIPHENHYDRAMINE
     Indication: PANIC DISORDER
     Route: 048
  6. PHENOBARBITAL. [Interacting]
     Active Substance: PHENOBARBITAL
     Indication: PANIC DISORDER
     Route: 048

REACTIONS (3)
  - Toxicity to various agents [Fatal]
  - Depressed level of consciousness [Fatal]
  - Drug interaction [Fatal]
